FAERS Safety Report 4908156-9 (Version None)
Quarter: 2006Q1

REPORT INFORMATION
  Report Type: 
  Country: None (occurrence: None)
  Receive Date: 20060210
  Receipt Date: 20060201
  Transmission Date: 20060701
  Serious: Yes (Death, Hospitalization)
  Sender: FDA-Public Use
  Company Number: JP-MERCK-0602USA00652

PATIENT
  Age: 78 Year
  Sex: Female

DRUGS (5)
  1. PEPCID [Suspect]
     Route: 042
     Dates: start: 20021001
  2. [COMPOSITION UNSPECIFIED] [Concomitant]
     Route: 042
  3. NAFAMOSTAT MESYLATE [Concomitant]
     Route: 065
  4. PRIMAXIN [Concomitant]
     Route: 042
  5. CITICOLINE [Concomitant]
     Route: 065

REACTIONS (2)
  - PANCREATITIS ACUTE [None]
  - SHOCK [None]
